FAERS Safety Report 6598906-0 (Version None)
Quarter: 2010Q1

REPORT INFORMATION
  Report Type: 
  Country: None (occurrence: None)
  Receive Date: 20100224
  Receipt Date: 20090206
  Transmission Date: 20100710
  Serious: No
  Sender: FDA-Public Use
  Company Number: US-BRISTOL-MYERS SQUIBB COMPANY-14497606

PATIENT

DRUGS (2)
  1. METFORMIN HCL [Suspect]
     Route: 048
  2. ACTOS [Suspect]

REACTIONS (1)
  - ABDOMINAL PAIN UPPER [None]
